FAERS Safety Report 7722525-3 (Version None)
Quarter: 2011Q3

REPORT INFORMATION
  Report Type: 
  Country: None (occurrence: None)
  Receive Date: 20110831
  Receipt Date: 20110822
  Transmission Date: 20111222
  Serious: Yes (Hospitalization)
  Sender: FDA-Public Use
  Company Number: PHHY2011MT04781

PATIENT
  Age: 64 Year
  Sex: Female

DRUGS (4)
  1. ZOMETA [Suspect]
     Dosage: 4MG/5ML, 4 WEEKLY
     Dates: start: 20101101
  2. ZOMETA [Suspect]
     Dosage: 4MG/5ML, 4 WEEKLY
     Dates: start: 20101001
  3. ZOMETA [Suspect]
     Indication: MULTIPLE MYELOMA
     Dosage: UNK
     Dates: start: 20091101, end: 20100301
  4. AREDIA [Suspect]
     Indication: MULTIPLE MYELOMA
     Dosage: UNK
     Dates: end: 20091001

REACTIONS (2)
  - OSTEONECROSIS OF JAW [None]
  - IMPAIRED HEALING [None]
